FAERS Safety Report 8229091-7 (Version None)
Quarter: 2012Q1

REPORT INFORMATION
  Report Type: 
  Country: None (occurrence: None)
  Receive Date: 20120322
  Receipt Date: 20120319
  Transmission Date: 20120608
  Serious: Yes (Other)
  Sender: FDA-Public Use
  Company Number: US-BAYER-2012-021913

PATIENT
  Age: 55 Year
  Sex: Female
  Weight: 49.887 kg

DRUGS (2)
  1. MAGNEVIST [Suspect]
     Indication: NUCLEAR MAGNETIC RESONANCE IMAGING BRAIN
     Dosage: 10 ML, ONCE
     Route: 042
     Dates: start: 20120216, end: 20120216
  2. LEVOTHYROXINE SODIUM [Concomitant]
     Dosage: 88 MG, UNK

REACTIONS (1)
  - INJECTION SITE THROMBOSIS [None]
